FAERS Safety Report 17086611 (Version 2)
Quarter: 2019Q4

REPORT INFORMATION
  Report Type: Spontaneous
  Country: CN (occurrence: CN)
  Receive Date: 20191128
  Receipt Date: 20191130
  Transmission Date: 20200122
  Serious: Yes (Death)
  Sender: FDA-Public Use
  Company Number: CN-JNJFOC-20191133924

PATIENT

DRUGS (1)
  1. IBUPROFEN. [Suspect]
     Active Substance: IBUPROFEN
     Indication: PATENT DUCTUS ARTERIOSUS
     Dosage: 3 DOSES AS 1 COURSE OF TREATMENT, AT AN INITIAL DOSE OF 10 MG / KG, 5 MG / KG EACH WAS GIVEN AFTER 2
     Route: 050

REACTIONS (3)
  - Product use in unapproved indication [Fatal]
  - Necrotising enterocolitis neonatal [Fatal]
  - Off label use [Fatal]
